FAERS Safety Report 12130327 (Version 1)
Quarter: 2016Q1

REPORT INFORMATION
  Report Type: Other
  Country: US (occurrence: US)
  Receive Date: 20160229
  Receipt Date: 20160229
  Transmission Date: 20160526
  Serious: No
  Sender: FDA-Public Use
  Company Number: US-ACORDA-ACO_32522_2012

PATIENT
  Sex: Female

DRUGS (2)
  1. REBIF [Suspect]
     Active Substance: INTERFERON BETA-1A
     Indication: PRODUCT USED FOR UNKNOWN INDICATION
     Dosage: UNK
     Route: 065
  2. AMPYRA [Suspect]
     Active Substance: DALFAMPRIDINE
     Indication: MULTIPLE SCLEROSIS
     Dosage: 10 MG, BID
     Route: 048
     Dates: start: 20120109, end: 2013

REACTIONS (9)
  - Tongue injury [Recovered/Resolved]
  - Lip disorder [Recovered/Resolved]
  - Swollen tongue [Recovered/Resolved]
  - Tongue disorder [Unknown]
  - Constipation [Not Recovered/Not Resolved]
  - Flushing [Unknown]
  - Dry mouth [Recovered/Resolved]
  - Condition aggravated [Recovered/Resolved]
  - Throat tightness [Recovered/Resolved]

NARRATIVE: CASE EVENT DATE: 2012
